FAERS Safety Report 16355318 (Version 1)
Quarter: 2019Q2

REPORT INFORMATION
  Report Type: Spontaneous
  Country: US (occurrence: US)
  Receive Date: 20190525
  Receipt Date: 20190525
  Transmission Date: 20190711
  Serious: Yes (Other)
  Sender: FDA-Public Use
  Company Number: US-BRISTOL-MYERS SQUIBB COMPANY-BMS-2019-049553

PATIENT
  Sex: Male

DRUGS (4)
  1. ELIQUIS [Suspect]
     Active Substance: APIXABAN
     Indication: PRODUCT USED FOR UNKNOWN INDICATION
     Dosage: 10 MILLIGRAM, BID
     Route: 048
     Dates: start: 20190512
  2. ELIQUIS [Suspect]
     Active Substance: APIXABAN
     Indication: PRODUCT USED FOR UNKNOWN INDICATION
     Dosage: 2.5 MILLIGRAM, BID
     Route: 048
  3. ELIQUIS [Suspect]
     Active Substance: APIXABAN
     Indication: PRODUCT USED FOR UNKNOWN INDICATION
     Dosage: 2.5 MILLIGRAM, BID
     Route: 048
  4. ELIQUIS [Suspect]
     Active Substance: APIXABAN
     Indication: PULMONARY EMBOLISM
     Dosage: 5 MILLIGRAM, BID
     Route: 048

REACTIONS (3)
  - Deep vein thrombosis postoperative [Unknown]
  - Lower limb fracture [Unknown]
  - Accident [Unknown]
